FAERS Safety Report 21124940 (Version 1)
Quarter: 2022Q3

REPORT INFORMATION
  Report Type: Other
  Country: US (occurrence: US)
  Receive Date: 20220725
  Receipt Date: 20220725
  Transmission Date: 20221027
  Serious: Yes (Hospitalization)
  Sender: FDA-Public Use
  Company Number: US-INTERCEPT-PM2021003374

PATIENT
  Sex: Female

DRUGS (2)
  1. OCALIVA [Suspect]
     Active Substance: OBETICHOLIC ACID
     Indication: Primary biliary cholangitis
     Dosage: 5 MILLIGRAM, QD
     Route: 048
     Dates: start: 20180310, end: 20180710
  2. OCALIVA [Suspect]
     Active Substance: OBETICHOLIC ACID
     Dosage: 10 MILLIGRAM, QD
     Route: 048
     Dates: start: 20180711

REACTIONS (4)
  - Illness [Unknown]
  - Jaundice [Not Recovered/Not Resolved]
  - Insurance issue [Not Recovered/Not Resolved]
  - Therapy interrupted [Not Recovered/Not Resolved]
